FAERS Safety Report 5194835-8 (Version None)
Quarter: 2006Q4

REPORT INFORMATION
  Report Type: 
  Country: None (occurrence: None)
  Receive Date: 20061227
  Receipt Date: 20061219
  Transmission Date: 20070319
  Serious: Yes (Hospitalization)
  Sender: FDA-Public Use
  Company Number: 234055

PATIENT
  Age: 68 Year
  Sex: Female

DRUGS (11)
  1. HERCEPTIN [Suspect]
     Indication: BREAST CANCER METASTATIC
     Dosage: 295 MG, INTRAVENOUS
     Route: 042
     Dates: start: 20060201
  2. DOXIL [Suspect]
     Indication: BREAST CANCER METASTATIC
     Dosage: 20 MG/M2, INTRAVENOUS
     Route: 042
     Dates: start: 20060201
  3. GEMCITABINE [Suspect]
     Indication: BREAST CANCER METASTATIC
     Dosage: 2945 MG/M2, INTRAVENOUS
     Route: 042
     Dates: start: 20060201
  4. ACETAMINOPHEN [Concomitant]
  5. AMITRIPTYLINE HCL [Concomitant]
  6. ATORVASTATIN (ATORVASTATIN CALCIUM) [Concomitant]
  7. DOCUSATE (DOCUSATE SODIUM) [Concomitant]
  8. GLYBURIDE [Concomitant]
  9. HYDROCHLOROTHIAZIDE [Concomitant]
  10. LISPRO INSULIN (LISPRO INSULIN) [Concomitant]
  11. TRIAMTERENE (TRIAMTERENE) [Concomitant]

REACTIONS (11)
  - ALANINE AMINOTRANSFERASE INCREASED [None]
  - ASPARTATE AMINOTRANSFERASE INCREASED [None]
  - BLOOD BICARBONATE INCREASED [None]
  - BLOOD GLUCOSE INCREASED [None]
  - BLOOD PRESSURE SYSTOLIC INCREASED [None]
  - HAEMATOCRIT DECREASED [None]
  - OSTEOARTHRITIS [None]
  - OSTEOMYELITIS [None]
  - RESPIRATORY RATE INCREASED [None]
  - SKIN ULCER [None]
  - TOE AMPUTATION [None]
